FAERS Safety Report 24788039 (Version 1)
Quarter: 2024Q4

REPORT INFORMATION
  Report Type: Spontaneous
  Country: US (occurrence: US)
  Receive Date: 20241230
  Receipt Date: 20241230
  Transmission Date: 20250115
  Serious: Yes (Other)
  Sender: ALEXION PHARMACEUTICALS
  Company Number: US-AstraZeneca-202412USA020788US

PATIENT

DRUGS (6)
  1. FARXIGA [Suspect]
     Active Substance: DAPAGLIFLOZIN PROPANEDIOL
     Indication: Product used for unknown indication
     Route: 065
  2. FARXIGA [Suspect]
     Active Substance: DAPAGLIFLOZIN PROPANEDIOL
     Route: 065
  3. FARXIGA [Suspect]
     Active Substance: DAPAGLIFLOZIN PROPANEDIOL
     Route: 065
  4. FARXIGA [Suspect]
     Active Substance: DAPAGLIFLOZIN PROPANEDIOL
     Route: 065
  5. VYNDAMAX [Suspect]
     Active Substance: TAFAMIDIS
     Dosage: 1 DOSAGE FORM, QD
     Route: 048
  6. VYNDAMAX [Suspect]
     Active Substance: TAFAMIDIS
     Dosage: 1 DOSAGE FORM, QD

REACTIONS (5)
  - Renal cancer [Unknown]
  - Hypoacusis [Unknown]
  - Influenza [Unknown]
  - Dyspnoea [Unknown]
  - Fatigue [Unknown]
